FAERS Safety Report 16858326 (Version 1)
Quarter: 2019Q3

REPORT INFORMATION
  Report Type: Spontaneous
  Country: CA (occurrence: CA)
  Receive Date: 20190926
  Receipt Date: 20190926
  Transmission Date: 20191005
  Serious: Yes (Hospitalization, Other)
  Sender: FDA-Public Use
  Company Number: CA-SHIRE-CA201931014

PATIENT

DRUGS (4)
  1. DANAZOL. [Concomitant]
     Active Substance: DANAZOL
     Indication: PRODUCT USED FOR UNKNOWN INDICATION
  2. CINRYZE [Suspect]
     Active Substance: HUMAN C1-ESTERASE INHIBITOR
     Dosage: UNK, 1X/DAY:QD
     Route: 042
  3. CINRYZE [Suspect]
     Active Substance: HUMAN C1-ESTERASE INHIBITOR
     Indication: HEREDITARY ANGIOEDEMA
     Dosage: UNK, 1X/DAY:QD
     Route: 058
  4. TECTA [Concomitant]
     Active Substance: PANTOPRAZOLE MAGNESIUM
     Indication: PRODUCT USED FOR UNKNOWN INDICATION

REACTIONS (7)
  - Prescribed overdose [Unknown]
  - Pancreatitis relapsing [Recovering/Resolving]
  - Splenic thrombosis [Recovering/Resolving]
  - Incorrect route of product administration [Unknown]
  - Inappropriate schedule of product administration [Unknown]
  - Splenic infection [Recovering/Resolving]
  - Off label use [Unknown]
